FAERS Safety Report 17129744 (Version 6)
Quarter: 2020Q3

REPORT INFORMATION
  Report Type: Spontaneous
  Country: PT (occurrence: PT)
  Receive Date: 20191209
  Receipt Date: 20200703
  Transmission Date: 20201102
  Serious: Yes (Hospitalization)
  Sender: FDA-Public Use
  Company Number: NVSC2019PT059681

PATIENT
  Age: 67 Year
  Sex: Female

DRUGS (7)
  1. CIPROFLOXACIN. [Suspect]
     Active Substance: CIPROFLOXACIN
     Indication: MYCOBACTERIAL INFECTION
     Dosage: UNK
     Route: 065
     Dates: start: 201806, end: 2018
  2. CIPROFLOXACIN. [Suspect]
     Active Substance: CIPROFLOXACIN
     Indication: SKIN BACTERIAL INFECTION
  3. CLARITHROMYCIN. [Interacting]
     Active Substance: CLARITHROMYCIN
     Indication: SKIN INFECTION
  4. CIPROFLOXACIN. [Suspect]
     Active Substance: CIPROFLOXACIN
     Indication: MYCOBACTERIUM CHELONAE INFECTION
  5. CIPROFLOXACIN. [Suspect]
     Active Substance: CIPROFLOXACIN
     Indication: SKIN INFECTION
  6. CLARITHROMYCIN. [Interacting]
     Active Substance: CLARITHROMYCIN
     Indication: MYCOBACTERIUM CHELONAE INFECTION
     Dosage: IN JUNE
     Route: 065
     Dates: start: 201806, end: 2018
  7. SIMVASTATIN. [Interacting]
     Active Substance: SIMVASTATIN
     Indication: DYSLIPIDAEMIA
     Dosage: UNK
     Route: 065

REACTIONS (14)
  - Off label use [Unknown]
  - Myositis [Unknown]
  - Muscular weakness [Recovering/Resolving]
  - Nausea [Recovering/Resolving]
  - Myopathy [Recovering/Resolving]
  - Acute kidney injury [Unknown]
  - Oedema peripheral [Unknown]
  - Rhabdomyolysis [Recovered/Resolved]
  - Hepatocellular injury [Recovered/Resolved]
  - Diarrhoea [Recovering/Resolving]
  - Myalgia [Recovered/Resolved]
  - Quadriparesis [Recovering/Resolving]
  - Drug interaction [Recovered/Resolved]
  - Mycobacterium chelonae infection [Unknown]

NARRATIVE: CASE EVENT DATE: 2018
